FAERS Safety Report 6720050-X (Version None)
Quarter: 2010Q2

REPORT INFORMATION
  Report Type: 
  Country: None (occurrence: None)
  Receive Date: 20100511
  Receipt Date: 20100507
  Transmission Date: 20101027
  Serious: Yes (Hospitalization)
  Sender: FDA-Public Use
  Company Number: CHPA2010US07879

PATIENT
  Age: 69 Year
  Sex: Female
  Weight: 58.957 kg

DRUGS (1)
  1. MAALOX TOTAL RELIEF (NCH) [Suspect]
     Indication: ABDOMINAL DISCOMFORT
     Dosage: 6 TSP, ONCE/SINGLE
     Route: 048
     Dates: start: 20100429, end: 20100429

REACTIONS (8)
  - ABDOMINAL DISCOMFORT [None]
  - ABDOMINAL PAIN UPPER [None]
  - ASTHENIA [None]
  - BLOOD POTASSIUM DECREASED [None]
  - CONSTIPATION [None]
  - DRUG INEFFECTIVE [None]
  - MALAISE [None]
  - VOMITING [None]
